FAERS Safety Report 9320528 (Version 1)
Quarter: 2013Q2

REPORT INFORMATION
  Report Type: Spontaneous
  Country: US (occurrence: US)
  Receive Date: 20130531
  Receipt Date: 20130531
  Transmission Date: 20140414
  Serious: No
  Sender: FDA-Public Use
  Company Number: US-009507513-1305USA016079

PATIENT
  Age: 45 Year
  Sex: Female

DRUGS (3)
  1. VICTRELIS [Suspect]
     Indication: HEPATITIS C
     Dosage: UNKNOWN
     Dates: start: 20130510, end: 20130521
  2. REBETOL [Suspect]
     Indication: HEPATITIS C
     Dosage: UNK
     Dates: start: 20130330
  3. PEGASYS [Suspect]
     Indication: HEPATITIS C
     Dosage: INJECTION ON FRIDAY
     Dates: start: 20130330

REACTIONS (6)
  - Jaundice [Unknown]
  - Skin disorder [Unknown]
  - Nausea [Unknown]
  - Vomiting [Unknown]
  - Decreased appetite [Unknown]
  - Diarrhoea [Unknown]
